FAERS Safety Report 23214206 (Version 1)
Quarter: 2023Q4

REPORT INFORMATION
  Report Type: Spontaneous
  Country: US (occurrence: None)
  Receive Date: 20231121
  Receipt Date: 20231121
  Transmission Date: 20240110
  Serious: Yes (Other)
  Sender: FDA-Public Use
  Company Number: None

PATIENT
  Age: 37 Year
  Sex: Female
  Weight: 58.95 kg

DRUGS (2)
  1. SEMAGLUTIDE [Suspect]
     Active Substance: SEMAGLUTIDE
     Indication: Weight decreased
     Dates: start: 20231106, end: 20231114
  2. LEXAPRO [Concomitant]
     Active Substance: ESCITALOPRAM OXALATE

REACTIONS (10)
  - Mental disorder [None]
  - Feeling of despair [None]
  - Feeling abnormal [None]
  - Movement disorder [None]
  - Panic attack [None]
  - Crying [None]
  - Drug ineffective [None]
  - Suicidal ideation [None]
  - Therapy cessation [None]
  - Prescribed overdose [None]

NARRATIVE: CASE EVENT DATE: 20231111
